FAERS Safety Report 6841045-1 (Version None)
Quarter: 2010Q3

REPORT INFORMATION
  Report Type: 
  Country: None (occurrence: None)
  Receive Date: 20100714
  Receipt Date: 20070625
  Transmission Date: 20110219
  Serious: No
  Sender: FDA-Public Use
  Company Number: US-PFIZER INC-2007052417

PATIENT
  Sex: Female
  Weight: 49 kg

DRUGS (9)
  1. CHANTIX [Suspect]
     Indication: SMOKING CESSATION THERAPY
     Dates: start: 20070613, end: 20070622
  2. ALENDRONATE SODIUM/COLECALCIFEROL [Concomitant]
     Indication: OSTEOPOROSIS
  3. PRILOSEC [Concomitant]
  4. LIPITOR [Concomitant]
  5. VITAMINS [Concomitant]
  6. CALCIUM [Concomitant]
  7. ACETYLSALICYLIC ACID [Concomitant]
  8. VITAMIN B-12 [Concomitant]
  9. FOSAMAX PLUS D [Concomitant]

REACTIONS (6)
  - ABDOMINAL DISCOMFORT [None]
  - ABDOMINAL DISTENSION [None]
  - ABNORMAL DREAMS [None]
  - DIARRHOEA [None]
  - FLATULENCE [None]
  - SOMNOLENCE [None]
